FAERS Safety Report 4668713-4 (Version None)
Quarter: 2005Q2

REPORT INFORMATION
  Report Type: 
  Country: None (occurrence: None)
  Receive Date: 20050519
  Receipt Date: 20050503
  Transmission Date: 20051028
  Serious: Yes (Hospitalization)
  Sender: FDA-Public Use
  Company Number: 2005046561

PATIENT
  Age: 63 Year
  Sex: Female

DRUGS (8)
  1. XANAX [Suspect]
     Indication: ILL-DEFINED DISORDER
  2. SINEQUAN [Suspect]
     Indication: ILL-DEFINED DISORDER
  3. THALOMID [Suspect]
     Indication: HYPERGAMMAGLOBULINAEMIA BENIGN MONOCLONAL
     Dosage: 200 MG 1 IN 1 D, ORAL
     Route: 048
     Dates: start: 20040730
  4. AMBIEN [Suspect]
     Indication: ILL-DEFINED DISORDER
  5. PLAVIX [Suspect]
     Indication: ILL-DEFINED DISORDER
  6. ANTIHYPERTENSIVES (ANTIHYPERTENSIVES) [Suspect]
     Indication: HYPERTENSION
  7. PANTOPRAZOLE SODIUM [Concomitant]
  8. LORAZEPAM [Concomitant]

REACTIONS (4)
  - FATIGUE [None]
  - HYPOTENSION [None]
  - INSOMNIA [None]
  - LOSS OF CONSCIOUSNESS [None]
